FAERS Safety Report 17499380 (Version 1)
Quarter: 2020Q1

REPORT INFORMATION
  Report Type: Spontaneous
  Country: FR (occurrence: FR)
  Receive Date: 20200304
  Receipt Date: 20200304
  Transmission Date: 20200409
  Serious: Yes (Other)
  Sender: FDA-Public Use
  Company Number: FR-009507513-2003FRA000388

PATIENT
  Age: 47 Year
  Sex: Female
  Weight: 48 kg

DRUGS (11)
  1. KARDEGIC [Concomitant]
     Active Substance: ASPIRIN DL-LYSINE
  2. METHYLPREDNISOLONE. [Suspect]
     Active Substance: METHYLPREDNISOLONE
     Indication: PRODUCT USED FOR UNKNOWN INDICATION
     Dosage: 60 MILLIGRAM, CYCLICAL
     Route: 042
     Dates: start: 20191107, end: 20200103
  3. TRAMADOL HYDROCHLORIDE. [Concomitant]
     Active Substance: TRAMADOL HYDROCHLORIDE
  4. GEMCITABINE. [Suspect]
     Active Substance: GEMCITABINE
     Indication: CHOLANGIOCARCINOMA
     Dosage: HEPATIC INTRA-ARTERIAL, DOSE: 1560MG
     Route: 013
     Dates: start: 20191107, end: 20200103
  5. OXALIPLATIN. [Suspect]
     Active Substance: OXALIPLATIN
     Indication: CHOLANGIOCARCINOMA
     Dosage: HEPATIC INTRA-ARTERIAL
     Route: 013
     Dates: start: 20191107, end: 20200103
  6. EMEND [Suspect]
     Active Substance: APREPITANT
     Indication: PREMEDICATION
     Route: 048
     Dates: start: 20191107, end: 20200103
  7. INEXIUM (ESOMEPRAZOLE MAGNESIUM) [Concomitant]
     Active Substance: ESOMEPRAZOLE MAGNESIUM
  8. DOLIPRANE [Concomitant]
     Active Substance: ACETAMINOPHEN
  9. LEELOO [Concomitant]
     Active Substance: ETHINYL ESTRADIOL\LEVONORGESTREL
  10. ALOXI [Suspect]
     Active Substance: PALONOSETRON HYDROCHLORIDE
     Indication: PREMEDICATION
     Route: 048
     Dates: start: 20191107, end: 20200103
  11. MORPHINE [Suspect]
     Active Substance: MORPHINE
     Indication: PREMEDICATION
     Route: 058
     Dates: start: 20191107, end: 20200103

REACTIONS (1)
  - Jaundice cholestatic [Recovering/Resolving]

NARRATIVE: CASE EVENT DATE: 20200116
